FAERS Safety Report 5392206-2 (Version None)
Quarter: 2007Q3

REPORT INFORMATION
  Report Type: 
  Country: None (occurrence: None)
  Receive Date: 20070720
  Receipt Date: 20070713
  Transmission Date: 20080115
  Serious: Yes (Life-Threatening)
  Sender: FDA-Public Use
  Company Number: FR-AVENTIS-200712279FR

PATIENT
  Age: 91 Year
  Sex: Female

DRUGS (4)
  1. LASILIX                            /00032601/ [Suspect]
     Indication: HYPERTENSION
     Route: 048
     Dates: end: 20070530
  2. KARDEGIC                           /00002703/ [Suspect]
     Indication: ATRIAL FIBRILLATION
     Route: 048
     Dates: end: 20070530
  3. COVERSYL                           /00790701/ [Suspect]
     Route: 048
     Dates: end: 20070530
  4. LERCAN [Suspect]
     Route: 048
     Dates: end: 20070530

REACTIONS (2)
  - GASTRIC ULCER PERFORATION [None]
  - PERITONITIS [None]
